FAERS Safety Report 7100091-3 (Version None)
Quarter: 2010Q4

REPORT INFORMATION
  Report Type: 
  Country: None (occurrence: None)
  Receive Date: 20101112
  Receipt Date: 20091130
  Transmission Date: 20110411
  Serious: Yes (Hospitalization)
  Sender: FDA-Public Use
  Company Number: A0816545A

PATIENT
  Age: 73 Year
  Sex: Female

DRUGS (8)
  1. CARVEDILOL [Suspect]
     Indication: HYPERTENSION
     Route: 048
     Dates: start: 20090901, end: 20091001
  2. CLONIDINE [Concomitant]
  3. HYZAAR [Concomitant]
  4. DOXEPIN HCL [Concomitant]
  5. ALLEGRA [Concomitant]
  6. BENTYL [Concomitant]
  7. GLIPIZIDE [Concomitant]
  8. INSULIN [Concomitant]

REACTIONS (2)
  - BLOOD PRESSURE INCREASED [None]
  - HYPERTENSION [None]
